FAERS Safety Report 18678384 (Version 1)
Quarter: 2020Q4

REPORT INFORMATION
  Report Type: Spontaneous
  Country: US (occurrence: US)
  Receive Date: 20201230
  Receipt Date: 20201230
  Transmission Date: 20210114
  Serious: Yes (Life-Threatening, Hospitalization, Other)
  Sender: FDA-Public Use
  Company Number: US-ALKEM LABORATORIES LIMITED-US-ALKEM-2020-03880

PATIENT
  Age: 61 Year
  Sex: Male

DRUGS (8)
  1. PREDNISONE. [Concomitant]
     Active Substance: PREDNISONE
     Indication: RHEUMATOID ARTHRITIS
     Dosage: 5 MILLIGRAM, QD
     Route: 065
  2. TACROLIMUS. [Suspect]
     Active Substance: TACROLIMUS
     Indication: IMMUNOSUPPRESSANT DRUG THERAPY
     Dosage: 4 MILLIGRAM, QD
     Route: 065
     Dates: start: 201705, end: 2019
  3. TACROLIMUS. [Suspect]
     Active Substance: TACROLIMUS
     Dosage: 1 MILLIGRAM, QD
     Route: 065
     Dates: start: 2019
  4. MYCOPHENOLATE MOFETIL. [Suspect]
     Active Substance: MYCOPHENOLATE MOFETIL
     Dosage: 750 MILLIGRAM, Q12 HRS
     Route: 065
     Dates: start: 2019, end: 2019
  5. TACROLIMUS. [Suspect]
     Active Substance: TACROLIMUS
     Dosage: 3 MILLIGRAM, QD
     Route: 065
     Dates: start: 201705, end: 2019
  6. LISINOPRIL. [Concomitant]
     Active Substance: LISINOPRIL
     Indication: HYPERTENSION
     Dosage: 10 MILLIGRAM, QD
     Route: 065
  7. MYCOPHENOLATE MOFETIL. [Suspect]
     Active Substance: MYCOPHENOLATE MOFETIL
     Indication: IMMUNOSUPPRESSANT DRUG THERAPY
     Dosage: 1000 MILLIGRAM, Q12 HRS
     Route: 065
     Dates: start: 201705, end: 2019
  8. TACROLIMUS. [Suspect]
     Active Substance: TACROLIMUS
     Dosage: 2 MILLIGRAM, QD
     Route: 065
     Dates: start: 2019

REACTIONS (3)
  - COVID-19 pneumonia [Recovered/Resolved]
  - Immunosuppression [Unknown]
  - Prescribed overdose [Unknown]

NARRATIVE: CASE EVENT DATE: 2019
